FAERS Safety Report 7389339-8 (Version None)
Quarter: 2011Q2

REPORT INFORMATION
  Report Type: 
  Country: None (occurrence: None)
  Receive Date: 20110401
  Receipt Date: 20110325
  Transmission Date: 20111010
  Serious: Yes (Other)
  Sender: FDA-Public Use
  Company Number: A0920618A

PATIENT
  Sex: Female

DRUGS (2)
  1. PROMACTA [Suspect]
     Dosage: 50MG PER DAY
     Route: 048
     Dates: end: 20101130
  2. CORTICOSTEROIDS [Concomitant]
     Indication: IDIOPATHIC THROMBOCYTOPENIC PURPURA

REACTIONS (3)
  - HAEMATOLOGICAL MALIGNANCY [None]
  - BONE MARROW RETICULIN FIBROSIS [None]
  - MYELOFIBROSIS [None]
